FAERS Safety Report 9644661 (Version 1)
Quarter: 2013Q4

REPORT INFORMATION
  Report Type: Report from Study
  Country: US (occurrence: US)
  Receive Date: 20131025
  Receipt Date: 20131025
  Transmission Date: 20140711
  Serious: Yes (Hospitalization)
  Sender: FDA-Public Use
  Company Number: US-JNJFOC-20131011923

PATIENT
  Age: 12 Year
  Sex: Female
  Weight: 75.5 kg

DRUGS (5)
  1. REMICADE [Suspect]
     Indication: CROHN^S DISEASE
     Route: 042
     Dates: start: 20100831
  2. HUMIRA [Concomitant]
     Route: 065
     Dates: start: 20101028
  3. PREDNISONE [Concomitant]
     Route: 065
  4. NEXIUM [Concomitant]
     Indication: INFLAMMATORY BOWEL DISEASE
     Route: 065
  5. ANTIBIOTICS [Concomitant]
     Indication: INFLAMMATORY BOWEL DISEASE
     Route: 065

REACTIONS (1)
  - Crohn^s disease [Recovered/Resolved]
